FAERS Safety Report 16650092 (Version 1)
Quarter: 2019Q3

REPORT INFORMATION
  Report Type: Spontaneous
  Country: US (occurrence: US)
  Receive Date: 20190731
  Receipt Date: 20190731
  Transmission Date: 20191004
  Serious: No
  Sender: FDA-Public Use
  Company Number: US-ELI_LILLY_AND_COMPANY-US201907007686

PATIENT
  Sex: Male

DRUGS (1)
  1. BASAGLAR [Suspect]
     Active Substance: INSULIN GLARGINE
     Indication: PRODUCT USED FOR UNKNOWN INDICATION
     Dosage: 35 U, UNKNOWN
     Route: 065
     Dates: start: 201903

REACTIONS (5)
  - Product dose omission [Unknown]
  - Ankle fracture [Recovering/Resolving]
  - Blood glucose increased [Unknown]
  - Asthenia [Unknown]
  - Decreased appetite [Unknown]
